FAERS Safety Report 10486910 (Version 2)
Quarter: 2014Q4

REPORT INFORMATION
  Report Type: Spontaneous
  Country: CA (occurrence: CA)
  Receive Date: 20141001
  Receipt Date: 20141015
  Transmission Date: 20150528
  Serious: Yes (Hospitalization, Other)
  Sender: FDA-Public Use
  Company Number: CA-AMGEN-CANSP2014073968

PATIENT
  Age: 86 Year
  Sex: Female
  Weight: 44.4 kg

DRUGS (1)
  1. PROLIA [Suspect]
     Active Substance: DENOSUMAB
     Indication: OSTEOPOROSIS
     Dosage: UNK UNK, Q6MO
     Route: 058
     Dates: start: 201305

REACTIONS (3)
  - Fall [Unknown]
  - Hip fracture [Unknown]
  - Injury [Unknown]

NARRATIVE: CASE EVENT DATE: 20140613
